FAERS Safety Report 9009762 (Version 1)
Quarter: 2013Q1

REPORT INFORMATION
  Report Type: Report from Study
  Country: US (occurrence: US)
  Receive Date: 20130110
  Receipt Date: 20130110
  Transmission Date: 20140127
  Serious: No
  Sender: FDA-Public Use
  Company Number: US-VERTEX PHARMACEUTICALS INC.-AE-2011-004101

PATIENT
  Age: 47 Year
  Sex: Female

DRUGS (8)
  1. VX-950 (TELAPREVIR) [Suspect]
     Indication: HEPATITIS C
     Dosage: 750 MG, BID
  2. PEGASYS [Concomitant]
     Indication: HEPATITIS C
     Route: 058
  3. RIBAPAK [Concomitant]
     Indication: HEPATITIS C
     Route: 048
  4. CARDURA [Concomitant]
  5. MELOXICAM [Concomitant]
  6. PROTONIX [Concomitant]
  7. POTASSIUM [Concomitant]
  8. ACAI BERRY [Concomitant]

REACTIONS (4)
  - Asthenia [Unknown]
  - Anaemia [Unknown]
  - Pruritus [Unknown]
  - Diarrhoea [Unknown]
